FAERS Safety Report 7901221-3 (Version None)
Quarter: 2011Q4

REPORT INFORMATION
  Report Type: 
  Country: None (occurrence: None)
  Receive Date: 20111108
  Receipt Date: 20111024
  Transmission Date: 20120403
  Serious: Yes (Other)
  Sender: FDA-Public Use
  Company Number: PHHY2011JP91217

PATIENT
  Age: 46 Year
  Sex: Male

DRUGS (4)
  1. CYCLOSPORINE [Suspect]
     Indication: PSORIASIS
     Dosage: 100 MG
     Route: 048
     Dates: start: 20000101, end: 20100701
  2. CYCLOSPORINE [Suspect]
     Dosage: 200 MG
     Route: 048
     Dates: start: 20100701
  3. CYCLOSPORINE [Suspect]
     Dosage: UNK UKN, UNK
     Route: 048
     Dates: end: 20101001
  4. INFLIXIMAB [Suspect]
     Dosage: 5 MG/KG,

REACTIONS (7)
  - PSORIATIC ARTHROPATHY [None]
  - ARTHRALGIA [None]
  - GAIT DISTURBANCE [None]
  - RASH [None]
  - JOINT SWELLING [None]
  - ARTHRITIS [None]
  - RENAL IMPAIRMENT [None]
